FAERS Safety Report 9476154 (Version 1)
Quarter: 2013Q3

REPORT INFORMATION
  Report Type: Spontaneous
  Country: US (occurrence: None)
  Receive Date: 20130823
  Receipt Date: 20130823
  Transmission Date: 20140515
  Serious: No
  Sender: FDA-Public Use
  Company Number: None

PATIENT
  Age: 34 Year
  Sex: Female

DRUGS (1)
  1. IMOVAX RABIES [Suspect]

REACTIONS (3)
  - Complement factor decreased [None]
  - Anxiety [None]
  - Allergy to vaccine [None]
